FAERS Safety Report 12764796 (Version 4)
Quarter: 2016Q4

REPORT INFORMATION
  Report Type: Spontaneous
  Country: IT (occurrence: IT)
  Receive Date: 20160921
  Receipt Date: 20161014
  Transmission Date: 20170207
  Serious: Yes (Death)
  Sender: FDA-Public Use
  Company Number: IT-ROCHE-1832739

PATIENT
  Age: 57 Year
  Sex: Female

DRUGS (17)
  1. PERJETA [Suspect]
     Active Substance: PERTUZUMAB
     Indication: BREAST CANCER
     Dosage: 420 MG -30 MG/ML - 1 VIAL; PERIOD: 1 DAY
     Route: 042
     Dates: start: 20160823
  2. PERJETA [Suspect]
     Active Substance: PERTUZUMAB
     Dosage: 30 MG/ML - 1 VIAL
     Route: 042
     Dates: start: 20160114, end: 20160510
  3. CLEXANE [Concomitant]
     Active Substance: ENOXAPARIN SODIUM
     Indication: FEMORAL NECK FRACTURE
     Route: 058
  4. CLEXANE [Concomitant]
     Active Substance: ENOXAPARIN SODIUM
     Route: 058
  5. FULVESTRANT [Concomitant]
     Active Substance: FULVESTRANT
     Route: 065
     Dates: start: 20160531, end: 20160823
  6. DENOSUMAB [Concomitant]
     Active Substance: DENOSUMAB
     Dosage: THREE DOSES OF DENOSUMAB
     Route: 065
     Dates: start: 20160531, end: 20160823
  7. DIBASE [Concomitant]
     Active Substance: CHOLECALCIFEROL
     Indication: OSTEOGENESIS IMPERFECTA
     Dosage: 20 DROPS
     Route: 048
  8. FASLODEX [Concomitant]
     Active Substance: FULVESTRANT
     Route: 065
  9. HEPARIN SODIUM. [Concomitant]
     Active Substance: HEPARIN SODIUM
  10. PERJETA [Suspect]
     Active Substance: PERTUZUMAB
     Indication: BREAST CANCER STAGE IV
     Route: 065
     Dates: start: 20150114
  11. PERJETA [Suspect]
     Active Substance: PERTUZUMAB
     Dosage: 30 MG/ML - 1 VIAL
     Route: 042
     Dates: start: 20160531, end: 20160823
  12. TRASTUZUMAB [Concomitant]
     Active Substance: TRASTUZUMAB
     Route: 065
     Dates: start: 20160531, end: 20160823
  13. OMEPRAZOLE. [Concomitant]
     Active Substance: OMEPRAZOLE
     Route: 048
  14. DOCETAXEL. [Concomitant]
     Active Substance: DOCETAXEL
     Route: 065
     Dates: start: 20160114, end: 20160510
  15. TRASTUZUMAB [Concomitant]
     Active Substance: TRASTUZUMAB
     Indication: BREAST CANCER STAGE IV
     Route: 065
     Dates: start: 20160114, end: 20160510
  16. TRIMETON (ITALY) [Concomitant]
     Indication: PREMEDICATION
     Dosage: 10 MG/1 ML SOLUTION FOR INJECTION^ 5 X 1 ML VIALS
     Route: 042
     Dates: start: 20160823, end: 20160823
  17. ARANESP [Concomitant]
     Active Substance: DARBEPOETIN ALFA
     Dosage: 1 X 0.3 ML PREFILLED SYRINGE
     Route: 058

REACTIONS (3)
  - Acute pulmonary oedema [Fatal]
  - Dyspnoea [Fatal]
  - Anaphylactic reaction [Fatal]

NARRATIVE: CASE EVENT DATE: 20160823
